FAERS Safety Report 5068551-7 (Version None)
Quarter: 2006Q3

REPORT INFORMATION
  Report Type: 
  Country: None (occurrence: None)
  Receive Date: 20060802
  Receipt Date: 20051121
  Transmission Date: 20061208
  Serious: No
  Sender: FDA-Public Use
  Company Number: US-BRISTOL-MYERS SQUIBB COMPANY-13189238

PATIENT
  Age: 69 Year
  Sex: Male
  Weight: 79 kg

DRUGS (5)
  1. COUMADIN [Suspect]
     Indication: THROMBOSIS
     Dosage: DOSE FOR THE LAST COUPLE OF YEARS: 4 MG/D ON SUN, TUES, WED, FRI, SAT ALTER W/ 6MG/D ON MON + THURS
     Dates: end: 20051117
  2. TRICOR [Concomitant]
     Dosage: FOR 2 TO 3 MONTHS
     Dates: start: 20050101
  3. PRAVACHOL [Concomitant]
     Dosage: FOR 3 TO 4 WEEKS
     Dates: start: 20050101
  4. LISINOPRIL [Concomitant]
     Dosage: FOR A FEW YEARS
  5. FISH OIL [Concomitant]

REACTIONS (1)
  - PROTHROMBIN TIME RATIO INCREASED [None]
